FAERS Safety Report 8572678-2 (Version None)
Quarter: 2012Q2

REPORT INFORMATION
  Report Type: 
  Country: None (occurrence: None)
  Receive Date: 20120420
  Receipt Date: 20110721
  Transmission Date: 20120825
  Serious: Yes (Disabling)
  Sender: FDA-Public Use
  Company Number: WAES 1107USA02782

PATIENT
  Age: 19 Year
  Sex: Female

DRUGS (3)
  1. ALLEGRA [Concomitant]
  2. SINGULAIR [Suspect]
     Indication: RHINITIS ALLERGIC
     Dosage: UNK/UNK/PO 10 MG/DAILY/PO
     Route: 048
     Dates: start: 20110701, end: 20110701
  3. SINGULAIR [Suspect]
     Indication: RHINITIS ALLERGIC
     Dosage: UNK/UNK/PO 10 MG/DAILY/PO
     Route: 048
     Dates: start: 20110501, end: 20110701

REACTIONS (2)
  - INAPPROPRIATE SCHEDULE OF DRUG ADMINISTRATION [None]
  - SOMNOLENCE [None]
